FAERS Safety Report 12852180 (Version 1)
Quarter: 2016Q4

REPORT INFORMATION
  Report Type: Spontaneous
  Country: US (occurrence: US)
  Receive Date: 20161014
  Receipt Date: 20161014
  Transmission Date: 20170207
  Serious: Yes (Disabling, Other)
  Sender: FDA-Public Use
  Company Number: None

PATIENT
  Age: 54 Year
  Sex: Female
  Weight: 74.25 kg

DRUGS (6)
  1. VITAMIN D [Concomitant]
     Active Substance: CHOLECALCIFEROL
  2. FISH OIL [Concomitant]
     Active Substance: FISH OIL
  3. MUCINEX [Concomitant]
     Active Substance: GUAIFENESIN
  4. MULTI-VITAMIN [Concomitant]
     Active Substance: .ALPHA.-TOCOPHEROL ACETATE, DL-\ASCORBIC ACID\CYANOCOBALAMIN\FLUORIDE ION\FOLIC ACID\NIACIN\PYRIDOXINE\RIBOFLAVIN\THIAMINE\VITAMIN A\VITAMIN D
  5. LEVAQUIN [Suspect]
     Active Substance: LEVOFLOXACIN
     Indication: SINUSITIS
     Route: 048
     Dates: start: 20160115, end: 20160118
  6. FLORA [Concomitant]

REACTIONS (16)
  - Burning sensation [None]
  - Feeling abnormal [None]
  - Exaggerated startle response [None]
  - Palpitations [None]
  - Chest pain [None]
  - Tinnitus [None]
  - Insomnia [None]
  - Autonomic nervous system imbalance [None]
  - Presyncope [None]
  - Hypoaesthesia [None]
  - Blood pressure increased [None]
  - Hyperacusis [None]
  - Dizziness [None]
  - Quality of life decreased [None]
  - Neuropathy peripheral [None]
  - Impaired work ability [None]

NARRATIVE: CASE EVENT DATE: 20160117
